FAERS Safety Report 4393432-1 (Version None)
Quarter: 2004Q3

REPORT INFORMATION
  Report Type: 
  Country: None (occurrence: None)
  Receive Date: 20040701
  Receipt Date: 20040621
  Transmission Date: 20050211
  Serious: Yes (Disabling)
  Sender: FDA-Public Use
  Company Number: 2004IC000263

PATIENT
  Age: 40 Year
  Sex: Female

DRUGS (1)
  1. FLUOROURACIL [Suspect]
     Indication: METASTASES TO LIVER
     Dosage: 1250 MG;WEEKLY;INTRA-ARTERIAL
     Route: 013
     Dates: start: 20040210, end: 20040515

REACTIONS (4)
  - CEREBRAL INFARCTION [None]
  - HAEMATOMA [None]
  - HEMIANOPIA HOMONYMOUS [None]
  - METASTASES TO LIVER [None]
